FAERS Safety Report 11108781 (Version 1)
Quarter: 2015Q2

REPORT INFORMATION
  Report Type: Spontaneous
  Country: US (occurrence: None)
  Receive Date: 20150511
  Receipt Date: 20150511
  Transmission Date: 20150821
  Serious: Yes (Life-Threatening, Hospitalization, Other)
  Sender: FDA-Public Use
  Company Number: None

PATIENT
  Age: 58 Year
  Sex: Female
  Weight: 90.72 kg

DRUGS (6)
  1. OMEPRAZOLE. [Concomitant]
     Active Substance: OMEPRAZOLE
  2. MULTIPLE VITAMIN [Concomitant]
     Active Substance: VITAMINS
  3. BIOTIN [Concomitant]
     Active Substance: BIOTIN
  4. DICLOFENAC SOD DR 75 MG TAB BLUEPOOIN [Suspect]
     Active Substance: DICLOFENAC SODIUM
     Indication: POST PROCEDURAL SWELLING
     Dosage: BY MOUTH
     Dates: start: 20150504, end: 20150507
  5. CALCIUM [Concomitant]
     Active Substance: CALCIUM
  6. ALLER CLEAR [Concomitant]

REACTIONS (10)
  - Palpitations [None]
  - Diarrhoea [None]
  - Headache [None]
  - Myocardial infarction [None]
  - Heart rate increased [None]
  - Dizziness [None]
  - Pain in jaw [None]
  - Blood pressure increased [None]
  - Oxygen saturation decreased [None]
  - Cerebrovascular accident [None]

NARRATIVE: CASE EVENT DATE: 20150507
